FAERS Safety Report 8970843 (Version 1)
Quarter: 2012Q4

REPORT INFORMATION
  Report Type: 
  Country: US (occurrence: US)
  Receive Date: 20121218
  Receipt Date: 20121218
  Transmission Date: 20130627
  Serious: Yes (Hospitalization, Other)
  Sender: FDA-Public Use
  Company Number: US-ELI_LILLY_AND_COMPANY-US201212004637

PATIENT
  Sex: Female

DRUGS (5)
  1. HUMULIN LENTE [Suspect]
     Indication: TYPE 1 DIABETES MELLITUS
     Dosage: UNK
  2. HUMULIN NPH [Suspect]
     Indication: TYPE 1 DIABETES MELLITUS
     Dosage: 20 u, each morning
  3. HUMULIN NPH [Suspect]
     Dosage: 10 u, each evening
  4. HUMALOG LISPRO [Suspect]
     Indication: TYPE 1 DIABETES MELLITUS
     Dosage: UNK UNK, prn
  5. HUMULIN REGULAR [Suspect]
     Indication: TYPE 1 DIABETES MELLITUS
     Dosage: UNK

REACTIONS (5)
  - Foot fracture [Unknown]
  - Open fracture [Unknown]
  - Foot fracture [Unknown]
  - Visual acuity reduced [Not Recovered/Not Resolved]
  - Blood glucose decreased [Unknown]
